FAERS Safety Report 17975780 (Version 2)
Quarter: 2020Q3

REPORT INFORMATION
  Report Type: Spontaneous
  Country: IE (occurrence: IE)
  Receive Date: 20200702
  Receipt Date: 20200708
  Transmission Date: 20201103
  Serious: Yes (Other)
  Sender: FDA-Public Use
  Company Number: IE-SA-2020SA169278

PATIENT

DRUGS (8)
  1. ALPROLIX [Suspect]
     Active Substance: EFTRENONACOG ALFA
     Dosage: 0.46 IU/ML, QD (ON POST DAY 01?03; INFUSION)
  2. ALPROLIX [Suspect]
     Active Substance: EFTRENONACOG ALFA
     Dosage: 1 IU/ML, QD ON DAY 0; INFUSION
  3. ALPROLIX [Suspect]
     Active Substance: EFTRENONACOG ALFA
     Dosage: 1 IU/ML, QD ON DAY 0; INFUSION
  4. ALPROLIX [Suspect]
     Active Substance: EFTRENONACOG ALFA
     Dosage: 0.46 IU/ML, QD (ON POST DAY 01?03; INFUSION)
  5. ALPROLIX [Suspect]
     Active Substance: EFTRENONACOG ALFA
     Dosage: 0.51 IU/ML, QD (INFUSION; ON POST DAY 04?07)
  6. ALPROLIX [Suspect]
     Active Substance: EFTRENONACOG ALFA
     Dosage: 97 IU/KG, QD (PRE?OPERATIVE DOSE; INFUSION)
  7. ALPROLIX [Suspect]
     Active Substance: EFTRENONACOG ALFA
     Dosage: 97 IU/KG, QD (PRE?OPERATIVE DOSE; INFUSION)
  8. ALPROLIX [Suspect]
     Active Substance: EFTRENONACOG ALFA
     Dosage: 0.51 IU/ML, QD (INFUSION; ON POST DAY 04?07)

REACTIONS (1)
  - Post procedural haemorrhage [Unknown]
